FAERS Safety Report 6912936-8 (Version None)
Quarter: 2010Q3

REPORT INFORMATION
  Report Type: 
  Country: None (occurrence: None)
  Receive Date: 20100806
  Receipt Date: 20090403
  Transmission Date: 20110219
  Serious: No
  Sender: FDA-Public Use
  Company Number: US-PFIZER INC-2008071998

PATIENT
  Sex: Male
  Weight: 122 kg

DRUGS (7)
  1. DETROL LA [Suspect]
     Indication: BLADDER DISORDER
     Dosage: 4 MG, 1X/DAY
     Dates: start: 20080701
  2. GLIPIZIDE [Suspect]
     Indication: DIABETES MELLITUS
     Dosage: 5 MG, 1X/DAY
  3. METFORMIN HCL [Suspect]
  4. AVANDIA [Suspect]
  5. BUPROPION HCL [Concomitant]
  6. LISINOPRIL [Concomitant]
     Indication: HYPERTENSION
  7. SIMVASTATIN [Concomitant]
     Indication: HYPERCHOLESTEROLAEMIA

REACTIONS (1)
  - BLOOD GLUCOSE INCREASED [None]
